FAERS Safety Report 15308320 (Version 1)
Quarter: 2018Q3

REPORT INFORMATION
  Report Type: Spontaneous
  Country: US (occurrence: US)
  Receive Date: 20180822
  Receipt Date: 20180822
  Transmission Date: 20181010
  Serious: Yes (Hospitalization, Disabling, Other)
  Sender: FDA-Public Use
  Company Number: US-BAYER-2018-010130

PATIENT

DRUGS (2)
  1. GADOLINIUM IN UNSPECIFIED DRUG [Suspect]
     Active Substance: GADOLINIUM
     Indication: ARTERIOGRAM CORONARY
  2. GADOLINIUM IN UNSPECIFIED DRUG [Suspect]
     Active Substance: GADOLINIUM
     Indication: CORONARY ARTERIAL STENT INSERTION
     Dosage: UNK, ONCE
     Route: 042
     Dates: start: 20170113, end: 20170113

REACTIONS (12)
  - Contrast media allergy [None]
  - Anxiety [None]
  - Mental disorder [None]
  - Emotional distress [None]
  - Mobility decreased [None]
  - Anhedonia [None]
  - Nervous system disorder [None]
  - Injury [None]
  - Pain [None]
  - Product quality issue [None]
  - Hospitalisation [Not Recovered/Not Resolved]
  - Nerve injury [None]

NARRATIVE: CASE EVENT DATE: 20170113
